FAERS Safety Report 7411027-X (Version None)
Quarter: 2011Q2

REPORT INFORMATION
  Report Type: 
  Country: None (occurrence: None)
  Receive Date: 20110413
  Receipt Date: 20110331
  Transmission Date: 20111010
  Serious: Yes (Hospitalization, Other)
  Sender: FDA-Public Use
  Company Number: US-ELI_LILLY_AND_COMPANY-US201003002718

PATIENT
  Sex: Female

DRUGS (6)
  1. FORTEO [Suspect]
     Dosage: 20 UG, DAILY (1/D)
  2. FORTEO [Suspect]
     Dosage: 20 UG, DAILY (1/D)
     Route: 065
  3. FORTEO [Suspect]
     Dosage: 20 UG, DAILY (1/D)
  4. FORTEO [Suspect]
     Indication: OSTEOPOROSIS
     Dosage: 20 UG, DAILY (1/D)
     Route: 065
     Dates: start: 20091114
  5. PREDNISONE [Concomitant]
     Dosage: 5 MG, DAILY (1/D)
  6. FORTEO [Suspect]
     Dosage: 20 UG, DAILY (1/D)

REACTIONS (13)
  - GAIT DISTURBANCE [None]
  - ASTHMA [None]
  - HOSPITALISATION [None]
  - GASTROENTERITIS VIRAL [None]
  - JOINT SWELLING [None]
  - ARTHRALGIA [None]
  - PAIN [None]
  - MUSCLE SPASMS [None]
  - MYOCARDIAL INFARCTION [None]
  - BRONCHITIS [None]
  - MYALGIA [None]
  - PAIN IN EXTREMITY [None]
  - NAUSEA [None]
